FAERS Safety Report 5902260-4 (Version None)
Quarter: 2008Q3

REPORT INFORMATION
  Report Type: 
  Country: None (occurrence: None)
  Receive Date: 20080929
  Receipt Date: 20080313
  Transmission Date: 20090109
  Serious: No
  Sender: FDA-Public Use
  Company Number: US-BAUSCH-2008BL001136

PATIENT
  Sex: Female

DRUGS (2)
  1. NEOMYCIN AND POLYMXIN B SULFATES AND HYDROCORTISONE [Suspect]
     Route: 047
     Dates: start: 20080313, end: 20080313
  2. OPTIVAR [Concomitant]
     Indication: EYE IRRITATION
     Route: 047

REACTIONS (3)
  - ABNORMAL SENSATION IN EYE [None]
  - ASTHENOPIA [None]
  - MEDICATION ERROR [None]
